FAERS Safety Report 18755119 (Version 1)
Quarter: 2021Q1

REPORT INFORMATION
  Report Type: Spontaneous
  Country: US (occurrence: US)
  Receive Date: 20210114
  Receipt Date: 20210114
  Transmission Date: 20210419
  Serious: No
  Sender: FDA-Public Use
  Company Number: None

PATIENT
  Sex: Female

DRUGS (1)
  1. CHLORHEXIDINE GLUCONATE ORAL RINSE [Suspect]
     Active Substance: CHLORHEXIDINE GLUCONATE
     Indication: ANTIBIOTIC PROPHYLAXIS
     Dates: start: 20201229

REACTIONS (5)
  - Nausea [None]
  - Coronavirus infection [None]
  - Product contamination [None]
  - Abdominal pain upper [None]
  - Recalled product administered [None]

NARRATIVE: CASE EVENT DATE: 20201229
